FAERS Safety Report 6873778-5 (Version None)
Quarter: 2010Q3

REPORT INFORMATION
  Report Type: 
  Country: None (occurrence: None)
  Receive Date: 20100723
  Receipt Date: 20090501
  Transmission Date: 20110219
  Serious: No
  Sender: FDA-Public Use
  Company Number: US-PFIZER INC-2009168953

PATIENT
  Sex: Female
  Weight: 68 kg

DRUGS (3)
  1. CHANTIX [Suspect]
     Indication: SMOKING CESSATION THERAPY
     Dosage: 1 MG, 2X/DAY
     Dates: start: 20081225, end: 20090131
  2. IMITREX [Concomitant]
     Indication: MIGRAINE
  3. ZOMIG [Concomitant]
     Indication: MIGRAINE

REACTIONS (4)
  - DEPRESSION [None]
  - DIARRHOEA [None]
  - PANIC ATTACK [None]
  - VOMITING [None]
